FAERS Safety Report 6193286-7 (Version None)
Quarter: 2009Q2

REPORT INFORMATION
  Report Type: 
  Country: None (occurrence: None)
  Receive Date: 20090518
  Receipt Date: 20090512
  Transmission Date: 20091009
  Serious: Yes (Death, Other)
  Sender: FDA-Public Use
  Company Number: JP-ROXANE LABORATORIES, INC.-2009-RO-00489RO

PATIENT
  Age: 55 Year
  Sex: Male

DRUGS (1)
  1. METHOTREXATE [Suspect]
     Indication: METASTASES TO MENINGES
     Route: 037

REACTIONS (4)
  - CONVULSION [None]
  - LEUKOENCEPHALOPATHY [None]
  - PNEUMONIA ASPIRATION [None]
  - RESPIRATORY FAILURE [None]
